FAERS Safety Report 5648980-0 (Version None)
Quarter: 2008Q1

REPORT INFORMATION
  Report Type: 
  Country: None (occurrence: None)
  Receive Date: 20080304
  Receipt Date: 20080226
  Transmission Date: 20080703
  Serious: Yes (Other)
  Sender: FDA-Public Use
  Company Number: US-JNJFOC-20080206723

PATIENT
  Sex: Female
  Weight: 20.41 kg

DRUGS (2)
  1. CONCERTA [Suspect]
     Indication: ATTENTION DEFICIT/HYPERACTIVITY DISORDER
     Route: 048
  2. OTHER MEDICATION [Concomitant]
     Indication: SLEEP DISORDER

REACTIONS (3)
  - AGGRESSION [None]
  - CRYING [None]
  - DEPRESSION [None]
